FAERS Safety Report 5787869-3 (Version None)
Quarter: 2008Q2

REPORT INFORMATION
  Report Type: 
  Country: None (occurrence: None)
  Receive Date: 20080624
  Receipt Date: 20080624
  Transmission Date: 20081010
  Serious: Yes (Other)
  Sender: FDA-Public Use
  Company Number: None

PATIENT
  Age: 56 Year
  Sex: Female

DRUGS (2)
  1. CYMBALTA [Suspect]
     Indication: MAJOR DEPRESSION
     Dosage: 60 MGS DAILY PO; 120MGS DAILY PO
     Route: 048
     Dates: start: 20070603, end: 20080606
  2. CYMBALTA [Suspect]
     Indication: MAJOR DEPRESSION
     Dosage: 60 MGS DAILY PO; 120MGS DAILY PO
     Route: 048
     Dates: start: 20080204, end: 20080606

REACTIONS (9)
  - ANXIETY [None]
  - DEPRESSION [None]
  - DISTURBANCE IN ATTENTION [None]
  - FATIGUE [None]
  - IRRITABILITY [None]
  - MUSCLE SPASMS [None]
  - PARAESTHESIA [None]
  - THINKING ABNORMAL [None]
  - WITHDRAWAL SYNDROME [None]
